FAERS Safety Report 19831177 (Version 1)
Quarter: 2021Q3

REPORT INFORMATION
  Report Type: Report from Study
  Country: MX (occurrence: MX)
  Receive Date: 20210915
  Receipt Date: 20210915
  Transmission Date: 20211014
  Serious: Yes (Hospitalization)
  Sender: FDA-Public Use
  Company Number: MX-BRISTOL-MYERS SQUIBB COMPANY-BMS-2021-089917

PATIENT
  Age: 39 Year
  Sex: Male

DRUGS (1)
  1. NIVOLUMAB [Suspect]
     Active Substance: NIVOLUMAB
     Indication: HODGKIN^S DISEASE
     Dosage: 240 MILLIGRAM, Q2WK
     Route: 042
     Dates: start: 20210215, end: 20210830

REACTIONS (1)
  - Pulmonary valve disease [Recovering/Resolving]

NARRATIVE: CASE EVENT DATE: 20210830
